FAERS Safety Report 11832877 (Version 3)
Quarter: 2016Q2

REPORT INFORMATION
  Report Type: Report from Study
  Country: US (occurrence: US)
  Receive Date: 20151214
  Receipt Date: 20160602
  Transmission Date: 20160815
  Serious: No
  Sender: FDA-Public Use
  Company Number: US-AMGEN-USASL2015130402

PATIENT
  Age: 72 Year
  Sex: Female

DRUGS (4)
  1. ENBREL [Suspect]
     Active Substance: ETANERCEPT
     Dosage: UNK
     Route: 065
  2. PREDNISONE. [Suspect]
     Active Substance: PREDNISONE
     Indication: PRODUCT USED FOR UNKNOWN INDICATION
     Dosage: UNK
     Route: 065
  3. ENBREL [Suspect]
     Active Substance: ETANERCEPT
     Indication: RHEUMATOID ARTHRITIS
     Dosage: 50 MG, QWK
     Route: 065
     Dates: start: 20151023
  4. METHOTREXATE [Concomitant]
     Active Substance: METHOTREXATE
     Dosage: UNK

REACTIONS (9)
  - Pain in extremity [Unknown]
  - Joint swelling [Unknown]
  - Mobility decreased [Unknown]
  - Unevaluable event [Unknown]
  - Neck pain [Unknown]
  - Drug ineffective [Unknown]
  - Pain [Unknown]
  - Musculoskeletal pain [Unknown]
  - Drug effect delayed [Unknown]

NARRATIVE: CASE EVENT DATE: 2015
